FAERS Safety Report 17050347 (Version 2)
Quarter: 2019Q4

REPORT INFORMATION
  Report Type: Report from Study
  Country: JP (occurrence: JP)
  Receive Date: 20191119
  Receipt Date: 20191211
  Transmission Date: 20200122
  Serious: Yes (Hospitalization, Other)
  Sender: FDA-Public Use
  Company Number: JP-PFIZER INC-2019501022

PATIENT
  Age: 68 Year
  Sex: Male
  Weight: 48 kg

DRUGS (6)
  1. SPIRONOLACTONE. [Concomitant]
     Active Substance: SPIRONOLACTONE
     Indication: CARDIAC FAILURE
     Dosage: 50 MG, 1X/DAY
     Route: 048
  2. VYNDAQEL [Suspect]
     Active Substance: TAFAMIDIS MEGLUMINE
     Indication: CARDIAC AMYLOIDOSIS
     Dosage: 80 MG, 1X/DAY
     Dates: start: 20190810
  3. RIVOTRIL [Concomitant]
     Active Substance: CLONAZEPAM
     Indication: FAMILIAL AMYLOIDOSIS
     Dosage: 0.5 MG, 1X/DAY
     Route: 048
     Dates: start: 20180726
  4. VYNDAQEL [Suspect]
     Active Substance: TAFAMIDIS MEGLUMINE
     Indication: HEREDITARY NEUROPATHIC AMYLOIDOSIS
     Dosage: 20 MG, 1X/DAY
     Route: 048
     Dates: start: 20180215, end: 20190809
  5. DELLEGRA [Concomitant]
     Active Substance: FEXOFENADINE HYDROCHLORIDE\PSEUDOEPHEDRINE HYDROCHLORIDE
     Indication: ASTHMA
     Dosage: 2 DF, 2X/DAY
     Route: 048
  6. GOSHAJINKIGAN [Concomitant]
     Active Substance: HERBALS
     Indication: FAMILIAL AMYLOIDOSIS
     Dosage: 2.5 MG, 1X/DAY
     Route: 048
     Dates: start: 20180531

REACTIONS (1)
  - Atrial fibrillation [Recovering/Resolving]

NARRATIVE: CASE EVENT DATE: 20180830
